FAERS Safety Report 11982417 (Version 1)
Quarter: 2016Q1

REPORT INFORMATION
  Report Type: Report from Study
  Country: US (occurrence: US)
  Receive Date: 20160201
  Receipt Date: 20160201
  Transmission Date: 20160526
  Serious: No
  Sender: FDA-Public Use
  Company Number: PHEH2016US001871

PATIENT
  Age: 53 Year
  Sex: Female

DRUGS (1)
  1. EXTAVIA [Suspect]
     Active Substance: INTERFERON BETA-1B
     Indication: MULTIPLE SCLEROSIS
     Dosage: 0.25 MG/ML, QOD
     Route: 058
     Dates: start: 20160114

REACTIONS (3)
  - Contusion [Unknown]
  - Skin atrophy [Unknown]
  - Skin swelling [Unknown]

NARRATIVE: CASE EVENT DATE: 20160114
